FAERS Safety Report 20418716 (Version 3)
Quarter: 2022Q3

REPORT INFORMATION
  Report Type: Spontaneous
  Country: PL (occurrence: PL)
  Receive Date: 20220202
  Receipt Date: 20220908
  Transmission Date: 20221027
  Serious: Yes (Life-Threatening, Hospitalization, Other)
  Sender: FDA-Public Use
  Company Number: PL-BAXTER-2022BAX001920

PATIENT
  Age: 29 Year
  Sex: Female

DRUGS (7)
  1. ONDANSETRON [Suspect]
     Active Substance: ONDANSETRON
     Indication: Nausea
     Dosage: 16 MILLIGRAM,ONCE
     Route: 065
  2. SEMAGLUTIDE [Suspect]
     Active Substance: SEMAGLUTIDE
     Indication: Obesity
     Dosage: 0.5 MILLIGRAM,PRN
     Route: 058
  3. BUPROPION [Suspect]
     Active Substance: BUPROPION
     Indication: Obesity
     Dosage: 150 MILLIGRAM,QD
     Route: 065
  4. BUPROPION [Suspect]
     Active Substance: BUPROPION
     Dosage: 300 MILLIGRAM,ONCE
     Route: 065
  5. BUPROPION [Suspect]
     Active Substance: BUPROPION
     Dosage: 90MG TABLET (2 TABLETS AFTER LUNCH).
     Route: 048
  6. NALTREXONE [Suspect]
     Active Substance: NALTREXONE
     Indication: Obesity
     Dosage: 8MG TABLET (2 TABLETS AFTER LUNCH), 16 MG, PM
     Route: 048
  7. VORTIOXETINE [Suspect]
     Active Substance: VORTIOXETINE
     Indication: Obesity
     Dosage: AFTER LAST MEAL, 10 MG, PM
     Route: 065

REACTIONS (4)
  - Myopathy [Recovering/Resolving]
  - Myoglobinuria [Recovering/Resolving]
  - Renal failure [Recovering/Resolving]
  - Serotonin syndrome [Recovering/Resolving]
